FAERS Safety Report 13757243 (Version 1)
Quarter: 2017Q3

REPORT INFORMATION
  Report Type: Spontaneous
  Country: US (occurrence: US)
  Receive Date: 20170716
  Receipt Date: 20170716
  Transmission Date: 20171127
  Serious: Yes (Life-Threatening, Hospitalization, Disabling, Other)
  Sender: FDA-Public Use
  Company Number: None

PATIENT
  Age: 77 Year
  Sex: Male
  Weight: 100.8 kg

DRUGS (26)
  1. LASIX [Concomitant]
     Active Substance: FUROSEMIDE
  2. CARTIA XT [Concomitant]
     Active Substance: DILTIAZEM HYDROCHLORIDE
  3. ANORO ELLIPTA [Concomitant]
     Active Substance: UMECLIDINIUM BROMIDE\VILANTEROL TRIFENATATE
  4. MVP [Concomitant]
  5. PACERONE [Suspect]
     Active Substance: AMIODARONE HYDROCHLORIDE
     Indication: ATRIAL FIBRILLATION
     Route: 048
  6. XARELTO [Concomitant]
     Active Substance: RIVAROXABAN
  7. PREDNISONE. [Concomitant]
     Active Substance: PREDNISONE
  8. VYVANSE [Concomitant]
     Active Substance: LISDEXAMFETAMINE DIMESYLATE
  9. BACTRIM DS [Concomitant]
     Active Substance: SULFAMETHOXAZOLE\TRIMETHOPRIM
  10. FLONASE [Concomitant]
     Active Substance: FLUTICASONE PROPIONATE
  11. HYDRALAZINE [Concomitant]
     Active Substance: HYDRALAZINE HYDROCHLORIDE
  12. PROTONIX [Concomitant]
     Active Substance: PANTOPRAZOLE SODIUM
  13. PRAVASTATIN. [Concomitant]
     Active Substance: PRAVASTATIN
  14. (CARTIA (DILTIAZEM) [Concomitant]
  15. SPIRIVA INSPIRE [Concomitant]
  16. RESVERATROL [Concomitant]
     Active Substance: DIETARY SUPPLEMENT\RESVERATROL
  17. PRIMIDONE. [Concomitant]
     Active Substance: PRIMIDONE
  18. DIGOXIN. [Concomitant]
     Active Substance: DIGOXIN
  19. TEMAZEPAM (RESTORIL) [Concomitant]
  20. PROBIOTIC [Concomitant]
     Active Substance: PROBIOTICS NOS
  21. DILTIAZEM (CARDIZEM) [Concomitant]
  22. ANDROGEL [Concomitant]
     Active Substance: TESTOSTERONE
  23. TYLENOL [Concomitant]
     Active Substance: ACETAMINOPHEN
  24. ALBUTEROL (VENTOLIN) [Concomitant]
  25. LOSARTIN [Concomitant]
     Active Substance: LOSARTAN
  26. PRISTIQ EXTENDED-RELEASE [Concomitant]
     Active Substance: DESVENLAFAXINE SUCCINATE

REACTIONS (3)
  - Pulmonary fibrosis [None]
  - Vision blurred [None]
  - Gait disturbance [None]

NARRATIVE: CASE EVENT DATE: 20170215
